FAERS Safety Report 7072727-7 (Version None)
Quarter: 2010Q4

REPORT INFORMATION
  Report Type: 
  Country: None (occurrence: None)
  Receive Date: 20101029
  Receipt Date: 20100304
  Transmission Date: 20110411
  Serious: No
  Sender: FDA-Public Use
  Company Number: A0848336A

PATIENT
  Age: 64 Year
  Sex: Female

DRUGS (7)
  1. ADVAIR DISKUS 100/50 [Suspect]
     Indication: BRONCHITIS
     Dosage: 1PUFF TWICE PER DAY
     Route: 055
     Dates: start: 20100301, end: 20100304
  2. UNKNOWN MEDICATION [Concomitant]
  3. METFORMIN [Concomitant]
  4. COUMADIN [Concomitant]
  5. BYSTOLIC [Concomitant]
  6. LIPITOR [Concomitant]
  7. AMOXICILLIN [Concomitant]

REACTIONS (3)
  - BLOOD GLUCOSE INCREASED [None]
  - PALPITATIONS [None]
  - SUFFOCATION FEELING [None]
